FAERS Safety Report 9407889 (Version 1)
Quarter: 2013Q3

REPORT INFORMATION
  Report Type: Spontaneous
  Country: US (occurrence: US)
  Receive Date: 20130718
  Receipt Date: 20130718
  Transmission Date: 20140515
  Serious: Yes (Other)
  Sender: FDA-Public Use
  Company Number: US-VERTEX PHARMACEUTICALS INC-2013-007986

PATIENT
  Age: 50 Year
  Sex: Female
  Weight: 64 kg

DRUGS (4)
  1. INCIVEK [Suspect]
     Indication: HEPATITIS C
     Dosage: 750 MG, TID
     Route: 048
     Dates: start: 20130607
  2. RIBAVIRIN [Suspect]
     Indication: HEPATITIS C
     Dosage: 600MG IN AM + 400 MG IN PM
     Route: 048
     Dates: start: 20130104
  3. RIBAVIRIN [Suspect]
     Dosage: 300 MG IN AM + 200 MG IN PM
     Route: 048
  4. PEGASYS [Suspect]
     Indication: HEPATITIS C
     Dosage: 180 ?G, QW
     Route: 058
     Dates: start: 20130104

REACTIONS (6)
  - Platelet count decreased [Not Recovered/Not Resolved]
  - Inappropriate schedule of drug administration [Unknown]
  - Skin discomfort [Not Recovered/Not Resolved]
  - Fatigue [Not Recovered/Not Resolved]
  - Dry skin [Not Recovered/Not Resolved]
  - Pruritus [Not Recovered/Not Resolved]
